FAERS Safety Report 11922470 (Version 1)
Quarter: 2016Q1

REPORT INFORMATION
  Report Type: Spontaneous
  Country: US (occurrence: US)
  Receive Date: 20160115
  Receipt Date: 20160115
  Transmission Date: 20160526
  Serious: Yes (Other)
  Sender: FDA-Public Use
  Company Number: US-PFIZER INC-2016010137

PATIENT
  Age: 57 Year
  Sex: Male

DRUGS (2)
  1. GABAPENTIN. [Suspect]
     Active Substance: GABAPENTIN
     Indication: SPINAL CORD DISORDER
     Dosage: 3600 MG, DAILY (600MG THREE TIMES AT DAYTIME AND THREE AT BEDTIME)
     Dates: start: 2010, end: 2013
  2. GABAPENTIN. [Suspect]
     Active Substance: GABAPENTIN
     Indication: PAIN IN EXTREMITY

REACTIONS (6)
  - Type 2 diabetes mellitus [Not Recovered/Not Resolved]
  - Drug ineffective [Unknown]
  - Agitation [Unknown]
  - Coordination abnormal [Unknown]
  - Diarrhoea [Unknown]
  - Nervousness [Unknown]

NARRATIVE: CASE EVENT DATE: 2013
